FAERS Safety Report 10050926 (Version 1)
Quarter: 2014Q2

REPORT INFORMATION
  Report Type: Spontaneous
  Country: US (occurrence: US)
  Receive Date: 20140401
  Receipt Date: 20140401
  Transmission Date: 20141212
  Serious: Yes (Other)
  Sender: FDA-Public Use
  Company Number: US-GLAXOSMITHKLINE-A1066717A

PATIENT
  Sex: Male

DRUGS (7)
  1. VOTRIENT [Suspect]
     Indication: RENAL CELL CARCINOMA
     Dosage: 800MG PER DAY
     Route: 048
     Dates: start: 201304, end: 20140325
  2. ALLOPURINOL [Concomitant]
  3. WARFARIN [Concomitant]
  4. LEVOTHYROXIN [Concomitant]
  5. SIMVASTATIN [Concomitant]
  6. METOPROLOL [Concomitant]
  7. PARACETAMOL [Concomitant]

REACTIONS (7)
  - Pneumonia [Not Recovered/Not Resolved]
  - Diarrhoea [Unknown]
  - Ageusia [Not Recovered/Not Resolved]
  - Ear discomfort [Unknown]
  - Bronchitis viral [Not Recovered/Not Resolved]
  - Cough [Not Recovered/Not Resolved]
  - Eustachian tube patulous [Unknown]
